FAERS Safety Report 8998329 (Version 2)
Quarter: 2013Q1

REPORT INFORMATION
  Report Type: Spontaneous
  Country: US (occurrence: US)
  Receive Date: 20130104
  Receipt Date: 20130306
  Transmission Date: 20140127
  Serious: Yes (Other)
  Sender: FDA-Public Use
  Company Number: US-BRISTOL-MYERS SQUIBB COMPANY-17244096

PATIENT
  Age: 75 Year
  Sex: Male
  Weight: 106.57 kg

DRUGS (1)
  1. SPRYCEL [Suspect]
     Indication: CHRONIC MYELOID LEUKAEMIA
     Route: 048
     Dates: start: 20120818

REACTIONS (3)
  - Hallucination [Unknown]
  - Pruritus [Recovered/Resolved]
  - Rash [Recovered/Resolved]
